FAERS Safety Report 11748018 (Version 1)
Quarter: 2015Q4

REPORT INFORMATION
  Report Type: Report from Study
  Country: US (occurrence: US)
  Receive Date: 20151117
  Receipt Date: 20151117
  Transmission Date: 20160304
  Serious: Yes (Other)
  Sender: FDA-Public Use
  Company Number: US-BAXALTA-2015BAX013436

PATIENT

DRUGS (2)
  1. GAMMAGARD LIQUID [Suspect]
     Active Substance: HUMAN IMMUNOGLOBULIN G
     Indication: SELECTIVE IGG SUBCLASS DEFICIENCY
     Dosage: 10 G, 1X A WEEK
     Route: 058
  2. GAMMAGARD LIQUID [Suspect]
     Active Substance: HUMAN IMMUNOGLOBULIN G
     Indication: PRIMARY IMMUNODEFICIENCY SYNDROME

REACTIONS (10)
  - Intracranial pressure increased [Recovering/Resolving]
  - Infusion site swelling [Not Recovered/Not Resolved]
  - Diarrhoea [Recovering/Resolving]
  - Fatigue [Unknown]
  - Vision blurred [Recovering/Resolving]
  - Headache [Recovering/Resolving]
  - Nausea [Recovering/Resolving]
  - Asthenia [Unknown]
  - Inflammation [Recovering/Resolving]
  - Dehydration [Recovering/Resolving]
